FAERS Safety Report 6379486-1 (Version None)
Quarter: 2009Q3

REPORT INFORMATION
  Report Type: 
  Country: None (occurrence: None)
  Receive Date: 20090923
  Receipt Date: 20090923
  Transmission Date: 20100115
  Serious: Yes (Hospitalization)
  Sender: FDA-Public Use
  Company Number: None

PATIENT
  Sex: Female
  Weight: 74 kg

DRUGS (3)
  1. CARBOPLATIN [Suspect]
     Dosage: 850 MG
  2. ERBITUX [Suspect]
     Dosage: 453 MG
  3. TAXOL [Suspect]
     Dosage: 360 MG

REACTIONS (3)
  - DRUG ERUPTION [None]
  - DYSPHAGIA [None]
  - NEUTROPENIA [None]
